FAERS Safety Report 11459541 (Version 1)
Quarter: 2015Q3

REPORT INFORMATION
  Report Type: Spontaneous
  Country: US (occurrence: US)
  Receive Date: 20150904
  Receipt Date: 20150904
  Transmission Date: 20151125
  Serious: No
  Sender: FDA-Public Use
  Company Number: US-TARO-2015TAR00083

PATIENT
  Age: 85 Year
  Sex: Female
  Weight: 86.17 kg

DRUGS (1)
  1. WARFARIN SODIUM TABLETS USP 5MG [Suspect]
     Active Substance: WARFARIN SODIUM
     Indication: PULMONARY EMBOLISM
     Dosage: 5 MG, 1X/DAY
     Route: 048
     Dates: start: 2013

REACTIONS (7)
  - Erythema [Unknown]
  - Blister [Unknown]
  - Pruritus [Unknown]
  - Scab [Not Recovered/Not Resolved]
  - Memory impairment [Not Recovered/Not Resolved]
  - Haemorrhage [Unknown]
  - Skin irritation [Not Recovered/Not Resolved]

NARRATIVE: CASE EVENT DATE: 201410
